FAERS Safety Report 9158338 (Version 3)
Quarter: 2013Q2

REPORT INFORMATION
  Report Type: Report from Study
  Country: US (occurrence: US)
  Receive Date: 20130312
  Receipt Date: 20130405
  Transmission Date: 20140414
  Serious: Yes (Life-Threatening, Hospitalization)
  Sender: FDA-Public Use
  Company Number: US-ROCHE-1200544

PATIENT
  Age: 59 Year
  Sex: Female
  Weight: 73.82 kg

DRUGS (14)
  1. PERTUZUMAB [Suspect]
     Indication: BREAST CANCER
     Route: 042
     Dates: start: 20130306
  2. TRASTUZUMAB [Suspect]
     Indication: BREAST CANCER
     Route: 042
     Dates: start: 20130306, end: 20130306
  3. TRASTUZUMAB [Suspect]
     Route: 042
     Dates: start: 20130315
  4. ALBUTEROL SULFATE [Concomitant]
     Route: 065
     Dates: start: 201203
  5. BUMETANIDE [Concomitant]
     Route: 065
     Dates: start: 2010
  6. LEVOTHYROXINE [Concomitant]
     Route: 065
     Dates: start: 2007
  7. OXAZEPAM [Concomitant]
     Route: 065
     Dates: start: 201203
  8. SIMVASTATIN [Concomitant]
     Route: 065
     Dates: start: 2010
  9. KLOR-CON [Concomitant]
     Route: 065
     Dates: start: 2010
  10. LIPITOR [Concomitant]
     Route: 065
     Dates: start: 20130307, end: 20130307
  11. LOVENOX [Concomitant]
     Route: 065
     Dates: start: 20130307, end: 20130307
  12. ATROVENT [Concomitant]
     Route: 065
     Dates: start: 20130306, end: 20130308
  13. LEVAQUIN [Concomitant]
     Route: 065
     Dates: start: 20130306, end: 20130307
  14. CEFEPIME [Concomitant]
     Route: 065
     Dates: start: 20130306, end: 20130308

REACTIONS (1)
  - Pneumonia [Recovered/Resolved]
